FAERS Safety Report 9878465 (Version 1)
Quarter: 2014Q1

REPORT INFORMATION
  Report Type: Spontaneous
  Country: FR (occurrence: FR)
  Receive Date: 20140206
  Receipt Date: 20140206
  Transmission Date: 20141002
  Serious: Yes (Hospitalization)
  Sender: FDA-Public Use
  Company Number: FR-EISAI INC-E7389-04700-SPO-FR

PATIENT
  Age: 60 Year
  Sex: Female

DRUGS (1)
  1. HALAVEN [Suspect]
     Indication: BREAST CANCER METASTATIC
     Dosage: UNKNOWN
     Route: 041
     Dates: start: 20140122

REACTIONS (6)
  - Intracranial haematoma [Not Recovered/Not Resolved]
  - Renal failure [Not Recovered/Not Resolved]
  - Confusional state [Not Recovered/Not Resolved]
  - Gait disturbance [Not Recovered/Not Resolved]
  - Platelet count decreased [Not Recovered/Not Resolved]
  - Pharyngitis [Not Recovered/Not Resolved]
